FAERS Safety Report 4757252-8 (Version None)
Quarter: 2005Q3

REPORT INFORMATION
  Report Type: 
  Country: None (occurrence: None)
  Receive Date: 20050830
  Receipt Date: 20050819
  Transmission Date: 20060218
  Serious: Yes (Hospitalization, Other)
  Sender: FDA-Public Use
  Company Number: 005469

PATIENT
  Age: 88 Year
  Sex: Female

DRUGS (10)
  1. WARFARIN SODIUM [Suspect]
     Indication: THROMBOSIS PROPHYLAXIS
     Dosage: ORAL
     Route: 048
     Dates: end: 20050526
  2. WARFARIN SODIUM [Suspect]
     Indication: THROMBOSIS PROPHYLAXIS
     Dosage: ORAL
     Route: 048
     Dates: start: 20050601
  3. DIGOXIN [Concomitant]
  4. COZAAR [Concomitant]
  5. NADOLOL [Concomitant]
  6. SULAR [Concomitant]
  7. CALCIUM GLUCONATE [Concomitant]
  8. CENTRUM (VITAMINS NOS, MINERALS NOS) [Concomitant]
  9. TRAVATAN [Concomitant]
  10. TIMOLOL MALEATE [Concomitant]

REACTIONS (3)
  - CATARACT OPERATION [None]
  - CEREBROVASCULAR ACCIDENT [None]
  - INTERNATIONAL NORMALISED RATIO INCREASED [None]
